FAERS Safety Report 8143831-7 (Version None)
Quarter: 2012Q1

REPORT INFORMATION
  Report Type: 
  Country: None (occurrence: None)
  Receive Date: 20120217
  Receipt Date: 20120214
  Transmission Date: 20120608
  Serious: Yes (Death, Hospitalization)
  Sender: FDA-Public Use
  Company Number: CA-B.I. PHARMACEUTICALS,INC./RIDGEFIELD-2011-CN-00860CN

PATIENT
  Age: 81 Year
  Sex: Female
  Weight: 63.5 kg

DRUGS (6)
  1. PERINDOPRIL ERBUMINE [Concomitant]
  2. RABEPRAZOLE SODIUM [Concomitant]
  3. PLAVIX [Concomitant]
  4. CARVEDILOL [Concomitant]
  5. PRADAXA [Suspect]
     Indication: ATRIAL FIBRILLATION
     Dosage: 220 MG
     Dates: start: 20110510
  6. ASPIRIN [Concomitant]

REACTIONS (2)
  - HAEMORRHAGE INTRACRANIAL [None]
  - GASTROINTESTINAL HAEMORRHAGE [None]
